FAERS Safety Report 13967923 (Version 1)
Quarter: 2017Q3

REPORT INFORMATION
  Report Type: Spontaneous
  Country: IT (occurrence: US)
  Receive Date: 20170914
  Receipt Date: 20170914
  Transmission Date: 20171128
  Serious: No
  Sender: FDA-Public Use
  Company Number: IT-BAYER-2017-175248

PATIENT
  Age: 10 Year
  Sex: Female

DRUGS (2)
  1. BECLOMETASONE [Suspect]
     Active Substance: BECLOMETHASONE DIPROPIONATE
  2. LORATADINE. [Suspect]
     Active Substance: LORATADINE

REACTIONS (2)
  - Precocious puberty [None]
  - Weight increased [None]
